FAERS Safety Report 9746786 (Version 2)
Quarter: 2013Q4

REPORT INFORMATION
  Report Type: Spontaneous
  Country: US (occurrence: US)
  Receive Date: 20131211
  Receipt Date: 20131212
  Transmission Date: 20140711
  Serious: Yes (Life-Threatening, Other)
  Sender: FDA-Public Use
  Company Number: CHPA2013US018190

PATIENT
  Age: 47 Year
  Sex: Female

DRUGS (1)
  1. RITEAID PLP [Suspect]
     Indication: SMOKING CESSATION THERAPY
     Dosage: 21 MG, ONCE/SINGLE
     Route: 062
     Dates: start: 20131123, end: 20131123

REACTIONS (7)
  - Respiratory arrest [Recovered/Resolved]
  - Convulsion [Recovering/Resolving]
  - Heart rate increased [Recovering/Resolving]
  - Chest pain [Recovering/Resolving]
  - Pruritus [Recovered/Resolved]
  - Incorrect dose administered [Unknown]
  - Overdose [Unknown]
